FAERS Safety Report 24531918 (Version 1)
Quarter: 2024Q4

REPORT INFORMATION
  Report Type: Spontaneous
  Country: MK (occurrence: MK)
  Receive Date: 20241022
  Receipt Date: 20241022
  Transmission Date: 20250114
  Serious: Yes (Other)
  Sender: BRISTOL-MYERS SQUIBB COMPANY
  Company Number: MK-BRISTOL-MYERS SQUIBB COMPANY-2024-163647

PATIENT
  Age: 73 Year
  Sex: Female

DRUGS (4)
  1. OPDIVO [Suspect]
     Active Substance: NIVOLUMAB
     Indication: Adenosquamous cell lung cancer
     Dosage: 4 CYCLES
     Dates: start: 20231108, end: 20240110
  2. OPDIVO [Suspect]
     Active Substance: NIVOLUMAB
     Dates: start: 20240214
  3. PEMETREXED [Suspect]
     Active Substance: PEMETREXED
     Indication: Adenosquamous cell lung cancer
     Dosage: PEMETREXED 500MG/BSA
     Dates: start: 20231108, end: 20240110
  4. CARBOPLATIN [Suspect]
     Active Substance: CARBOPLATIN
     Indication: Adenosquamous cell lung cancer
     Dosage: AUC 5
     Dates: start: 20231108, end: 20240110

REACTIONS (6)
  - Hypocalcaemia [Unknown]
  - Hypoproteinaemia [Unknown]
  - Peripheral sensory neuropathy [Unknown]
  - Necrosis [Unknown]
  - Vasculitis [Unknown]
  - Malignant neoplasm progression [Unknown]

NARRATIVE: CASE EVENT DATE: 20240101
